FAERS Safety Report 23157017 (Version 1)
Quarter: 2023Q4

REPORT INFORMATION
  Report Type: Other
  Country: PK (occurrence: None)
  Receive Date: 20231108
  Receipt Date: 20231108
  Transmission Date: 20240110
  Serious: Yes (Death)
  Sender: FDA-Public Use
  Company Number: PK-ROCHE-3451369

PATIENT
  Age: 39 Year
  Sex: Male

DRUGS (1)
  1. RITUXIMAB [Suspect]
     Active Substance: RITUXIMAB
     Indication: Rheumatoid arthritis
     Route: 042
     Dates: start: 20230908

REACTIONS (2)
  - Death [Fatal]
  - Loss of consciousness [Fatal]

NARRATIVE: CASE EVENT DATE: 20230910
